FAERS Safety Report 8274582-6 (Version None)
Quarter: 2012Q2

REPORT INFORMATION
  Report Type: 
  Country: None (occurrence: None)
  Receive Date: 20120411
  Receipt Date: 20120405
  Transmission Date: 20120825
  Serious: Yes (Hospitalization)
  Sender: FDA-Public Use
  Company Number: US-GLAXOSMITHKLINE-A0866119A

PATIENT
  Age: 50 Year
  Sex: Male
  Weight: 92.3 kg

DRUGS (14)
  1. COREG [Concomitant]
  2. WELLBUTRIN XL [Concomitant]
  3. OMEPRAZOLE [Concomitant]
  4. VOLTAREN [Concomitant]
  5. ADVAIR DISKUS 100/50 [Concomitant]
  6. LEXAPRO [Concomitant]
  7. ALBUTEROL [Concomitant]
  8. ZESTRIL [Concomitant]
  9. ABILIFY [Concomitant]
  10. TRICOR [Concomitant]
  11. ZESTRIL [Concomitant]
  12. GLUCOPHAGE [Concomitant]
  13. SEROQUEL [Concomitant]
  14. AVANDIA [Suspect]
     Indication: DIABETES MELLITUS
     Dosage: 4MG TWICE PER DAY
     Route: 048
     Dates: start: 20060701, end: 20070614

REACTIONS (2)
  - CARDIAC FAILURE [None]
  - MYOCARDIAL INFARCTION [None]
